FAERS Safety Report 23987922 (Version 1)
Quarter: 2024Q2

REPORT INFORMATION
  Report Type: Spontaneous
  Country: US (occurrence: US)
  Receive Date: 20240619
  Receipt Date: 20240619
  Transmission Date: 20240716
  Serious: No
  Sender: FDA-Public Use
  Company Number: US-Accord-425975

PATIENT
  Sex: Male

DRUGS (2)
  1. LEUPROLIDE [Suspect]
     Active Substance: LEUPROLIDE
     Indication: Prostate cancer
     Dosage: EVERY 6 MONTHS, INJECTABLE EMULSION
  2. LEUPROLIDE [Suspect]
     Active Substance: LEUPROLIDE
     Indication: Prostate cancer
     Dosage: EVERY 6 MONTHS, INJECTABLE EMULSION

REACTIONS (3)
  - Trigger finger [Unknown]
  - Tremor [Unknown]
  - Muscle twitching [Unknown]
